FAERS Safety Report 16701151 (Version 1)
Quarter: 2019Q3

REPORT INFORMATION
  Report Type: Spontaneous
  Country: CA (occurrence: CA)
  Receive Date: 20190814
  Receipt Date: 20190814
  Transmission Date: 20191004
  Serious: Yes (Other)
  Sender: FDA-Public Use
  Company Number: CA-JNJFOC-20190630055

PATIENT
  Age: 10 Year
  Sex: Male

DRUGS (11)
  1. METHOTREXATE. [Suspect]
     Active Substance: METHOTREXATE
     Indication: BURKITT^S LYMPHOMA STAGE III
     Dosage: HD METHOTREXATE 3000 MG/M2 I.V. OVER 3 HOURS ON DAY 1; CYCLICAL
     Route: 042
  2. CYCLOPHOSPHAMIDE. [Suspect]
     Active Substance: CYCLOPHOSPHAMIDE
     Indication: BURKITT^S LYMPHOMA STAGE III
     Route: 042
  3. METHOTREXATE. [Suspect]
     Active Substance: METHOTREXATE
     Dosage: METHOTREXATE IT: 15 MG X 2 DOSES ON DAYS 2 AND 6; CYCLICAL
     Route: 039
  4. PREDNISONE. [Suspect]
     Active Substance: PREDNISONE
     Indication: BURKITT^S LYMPHOMA STAGE III
     Dosage: 30 MG/M2/DOSE P.O. B.I.D. X 10 DOSES ON DAYS 1, 2, 3, 4, 5 AND THEN TAPER OVER 3 DAYS; CYCLICAL
     Route: 048
  5. RITUXIMAB. [Suspect]
     Active Substance: RITUXIMAB
     Indication: BURKITT^S LYMPHOMA STAGE III
     Dosage: 375 MG/M2 I.V. ON DAY -1 ( = DAY 6 OF COP) AND DAY 1 (NO THERAPY ON DAY 0); CYCLICAL
     Route: 042
  6. LEVOFLOXACIN. [Concomitant]
     Active Substance: LEVOFLOXACIN
     Indication: PROPHYLAXIS
     Dosage: ; CYCLICAL
     Route: 048
  7. FILGRASTIM [Concomitant]
     Active Substance: FILGRASTIM
     Indication: PROPHYLAXIS
     Dosage: FILGRASTIM (G-CSF) 5 MCG/KG/DOSE (MAX 300 MCG) S.C. DAILY [24 HOURS AFTER THE LAST DOSE OF CHEMO ...
     Route: 058
  8. DOXIL [Suspect]
     Active Substance: DOXORUBICIN HYDROCHLORIDE
     Indication: BURKITT^S LYMPHOMA STAGE III
     Dosage: 60 MG/M2 I.V. OVER 15 MINUTES ON DAY 2 (AFTER THE FIRST DOSE OF CYCLOPHOSPHAMIDE); CYCLICAL
     Route: 065
  9. HYDROCORTISONE. [Suspect]
     Active Substance: HYDROCORTISONE
     Indication: BURKITT^S LYMPHOMA STAGE III
     Dosage: 15 MG X 2 DOSES ON DAYS 2 AND 6; CYCLICAL
     Route: 037
  10. VINCRISTINE [Suspect]
     Active Substance: VINCRISTINE
     Indication: BURKITT^S LYMPHOMA STAGE III
     Dosage: 2 MG/M2 (MAX 2MG) I.V. PUSH ON DAY 1; CYCLICAL
     Route: 042
  11. FOLINIC ACID [Concomitant]
     Active Substance: LEUCOVORIN
     Indication: PROPHYLAXIS
     Dosage: ORAL LEUCOVORIN (5 MG/M2) AT 48 AND 60 HOURS AFTER INTRATHECAL MTX ON DAY 6; CYCLICAL
     Route: 048

REACTIONS (3)
  - Febrile neutropenia [Recovered/Resolved]
  - Hypotension [Unknown]
  - Mucosal inflammation [Recovered/Resolved]
